FAERS Safety Report 5871156-9 (Version None)
Quarter: 2008Q3

REPORT INFORMATION
  Report Type: 
  Country: None (occurrence: None)
  Receive Date: 20080902
  Receipt Date: 20080821
  Transmission Date: 20090109
  Serious: Yes (Hospitalization)
  Sender: FDA-Public Use
  Company Number: 2008BI003216

PATIENT
  Age: 53 Year
  Sex: Female
  Weight: 56.6996 kg

DRUGS (9)
  1. TYSABRI [Suspect]
     Indication: MULTIPLE SCLEROSIS
     Dosage: 300 MG; QM; IV
     Route: 042
     Dates: start: 20071031, end: 20080201
  2. AMANTADINE (CON.) [Concomitant]
  3. SOTALOL (CON.) [Concomitant]
  4. ASPIRIN (CON.) [Concomitant]
  5. FOSAMAX (CON.) [Concomitant]
  6. DIAZEPAM (CON.) [Concomitant]
  7. CLARITIN (CON.) [Concomitant]
  8. LORTAB(CON.) [Concomitant]
  9. AMBIEN(CON.) [Concomitant]

REACTIONS (17)
  - ABDOMINAL DISTENSION [None]
  - ASTHENIA [None]
  - BODY TEMPERATURE INCREASED [None]
  - COGNITIVE DISORDER [None]
  - CONDITION AGGRAVATED [None]
  - CONSTIPATION [None]
  - DIVERTICULAR PERFORATION [None]
  - DIVERTICULITIS [None]
  - FEMALE GENITAL TRACT FISTULA [None]
  - INTESTINAL OBSTRUCTION [None]
  - MULTIPLE SCLEROSIS [None]
  - PELVIC INFLAMMATORY DISEASE [None]
  - PERIDIVERTICULAR ABSCESS [None]
  - POST PROCEDURAL COMPLICATION [None]
  - PROCTALGIA [None]
  - RECTAL HAEMORRHAGE [None]
  - RESPIRATORY RATE INCREASED [None]
